FAERS Safety Report 18941971 (Version 3)
Quarter: 2022Q1

REPORT INFORMATION
  Report Type: Report from Study
  Country: US (occurrence: US)
  Receive Date: 20210225
  Receipt Date: 20220302
  Transmission Date: 20220423
  Serious: No
  Sender: FDA-Public Use
  Company Number: NVSC2021US044650

PATIENT
  Sex: Male

DRUGS (2)
  1. COSENTYX [Suspect]
     Active Substance: SECUKINUMAB
     Indication: Psoriasis
     Dosage: 300 MG, QW (300MG Q WEEKLY X 5 WEEKS THEN 300 Q 4 WEEKS)
     Route: 058
     Dates: end: 202009
  2. COSENTYX [Suspect]
     Active Substance: SECUKINUMAB
     Dosage: 300 MG, QMO
     Route: 058

REACTIONS (4)
  - Illness [Recovering/Resolving]
  - Oropharyngeal pain [Unknown]
  - Candida infection [Recovering/Resolving]
  - Tonsillitis [Recovered/Resolved]
